FAERS Safety Report 15094682 (Version 1)
Quarter: 2018Q3

REPORT INFORMATION
  Report Type: Spontaneous
  Country: GB (occurrence: GB)
  Receive Date: 20180701
  Receipt Date: 20180701
  Transmission Date: 20181010
  Serious: Yes (Other)
  Sender: FDA-Public Use
  Company Number: GB-TORRENT-00016794

PATIENT
  Age: 50 Year
  Sex: Female

DRUGS (1)
  1. RISPERIDONE. [Suspect]
     Active Substance: RISPERIDONE
     Indication: BIPOLAR DISORDER
     Dosage: DOSAGE UNKNOWN
     Route: 048

REACTIONS (16)
  - Pruritus [Unknown]
  - Thirst [Unknown]
  - Alopecia [Unknown]
  - Fatigue [Unknown]
  - Ageusia [Unknown]
  - Dry mouth [Unknown]
  - Pollakiuria [Unknown]
  - Weight decreased [Unknown]
  - Dry eye [Unknown]
  - Muscle twitching [Recovering/Resolving]
  - Restlessness [Unknown]
  - Decreased appetite [Unknown]
  - Confusional state [Unknown]
  - Blood prolactin increased [Unknown]
  - Disturbance in attention [Unknown]
  - Depression [Unknown]
